FAERS Safety Report 8907433 (Version 1)
Quarter: 2012Q4

REPORT INFORMATION
  Report Type: 
  Country: US (occurrence: US)
  Receive Date: 20121114
  Receipt Date: 20121114
  Transmission Date: 20130627
  Serious: No
  Sender: FDA-Public Use
  Company Number: PHEH2012US022427

PATIENT
  Sex: Male

DRUGS (7)
  1. TASIGNA [Suspect]
  2. PANTOPRAZOLE [Concomitant]
     Indication: GASTROOESOPHAGEAL REFLUX DISEASE
  3. LISINOPRIL [Concomitant]
  4. CARVEDILOL [Concomitant]
  5. AVODART [Concomitant]
  6. DEXILANT [Concomitant]
  7. TERAZOSIN [Concomitant]

REACTIONS (1)
  - Gastrooesophageal reflux disease [Unknown]
